FAERS Safety Report 11867898 (Version 1)
Quarter: 2015Q4

REPORT INFORMATION
  Report Type: Spontaneous
  Country: US (occurrence: US)
  Receive Date: 20151224
  Receipt Date: 20151224
  Transmission Date: 20160305
  Serious: Yes (Hospitalization, Other)
  Sender: FDA-Public Use
  Company Number: US-SA-2015SA214399

PATIENT
  Sex: Male

DRUGS (2)
  1. HUMALOG [Concomitant]
     Active Substance: INSULIN LISPRO
  2. LANTUS [Suspect]
     Active Substance: INSULIN GLARGINE
     Indication: TYPE 2 DIABETES MELLITUS
     Dosage: 50 U IN THE MORNING AND 60 U IN PM, VIAL
     Route: 065

REACTIONS (4)
  - Tremor [Unknown]
  - Hepatic cirrhosis [Unknown]
  - Hospitalisation [Unknown]
  - Drug administration error [Unknown]
